FAERS Safety Report 7277640-8 (Version None)
Quarter: 2011Q1

REPORT INFORMATION
  Report Type: 
  Country: None (occurrence: None)
  Receive Date: 20110207
  Receipt Date: 20110124
  Transmission Date: 20110831
  Serious: Yes (Hospitalization)
  Sender: FDA-Public Use
  Company Number: JP-AMGEN-US366995

PATIENT
  Age: 64 Year
  Sex: Female
  Weight: 48 kg

DRUGS (18)
  1. MUCOSTA [Concomitant]
     Dosage: 100 MG, QD
     Route: 048
     Dates: end: 20080904
  2. PREDNISOLONE [Concomitant]
     Dosage: 40 MG, QD
     Route: 048
     Dates: start: 20070203, end: 20070228
  3. ZYLORIC                            /00003301/ [Concomitant]
     Dosage: 50 MG, QD
     Route: 048
     Dates: start: 20070801, end: 20080904
  4. PREDNISOLONE [Concomitant]
     Dosage: 10 MG, QD
     Route: 048
     Dates: start: 20070301, end: 20070605
  5. ENBREL [Suspect]
     Dosage: 25 MG, QWK
     Route: 058
     Dates: start: 20080416, end: 20080708
  6. AZULFIDINE [Suspect]
     Dosage: 500 MG, QD
     Route: 048
     Dates: start: 20070112, end: 20070203
  7. PREDNISOLONE [Concomitant]
     Dosage: 5 MG, QD
     Route: 048
     Dates: end: 20070202
  8. PREDNISOLONE [Concomitant]
     Dosage: 7 MG, QD
     Route: 048
     Dates: start: 20071031, end: 20071225
  9. PREDNISOLONE [Concomitant]
     Dosage: 6 MG, QD
     Route: 048
     Dates: start: 20071226, end: 20080122
  10. PREDNISOLONE [Concomitant]
     Dosage: 4 MG, QD
     Route: 048
     Dates: start: 20080220, end: 20080318
  11. ENBREL [Suspect]
     Dosage: 25 MG, 2 TIMES/WK
     Route: 058
     Dates: start: 20080709, end: 20080901
  12. PREDNISOLONE [Concomitant]
     Dosage: 9 MG, QD
     Route: 048
     Dates: start: 20070606, end: 20070731
  13. PREDNISOLONE [Concomitant]
     Dosage: 5 MG, QD
     Route: 048
     Dates: start: 20080123, end: 20080219
  14. ENBREL [Suspect]
     Indication: RHEUMATOID ARTHRITIS
     Dosage: 25 MG, 2 TIMES/WK
     Route: 058
     Dates: start: 20070125, end: 20080415
  15. AMLODIPINE [Concomitant]
     Dosage: 5 MG, QD
     Route: 048
     Dates: start: 20070919, end: 20080904
  16. PREDNISOLONE [Concomitant]
     Dosage: 8 MG, QD
     Route: 048
     Dates: start: 20070801, end: 20071030
  17. PREDNISOLONE [Concomitant]
     Dosage: 3 MG, QD
     Route: 048
     Dates: start: 20080319, end: 20080513
  18. PREDNISOLONE [Concomitant]
     Dosage: 2 MG, QD
     Route: 048
     Dates: start: 20080101, end: 20080904

REACTIONS (2)
  - GLOMERULONEPHRITIS RAPIDLY PROGRESSIVE [None]
  - HAEMOLYTIC URAEMIC SYNDROME [None]
